FAERS Safety Report 6346731-8 (Version None)
Quarter: 2009Q3

REPORT INFORMATION
  Report Type: 
  Country: None (occurrence: None)
  Receive Date: 20090904
  Receipt Date: 20090818
  Transmission Date: 20100115
  Serious: Yes (Hospitalization)
  Sender: FDA-Public Use
  Company Number: 002730

PATIENT
  Age: 76 Year
  Sex: Male

DRUGS (6)
  1. MACUGEN [Suspect]
     Indication: MACULAR DEGENERATION
     Dosage: 1 EVERY SIX WEEKS, INTRAOCULAR
     Route: 031
     Dates: start: 20070905
  2. ALL OTHER THERAPEUTIC PRODUCTS [Concomitant]
  3. ASCORUTIN (ASCORBIC ACID,RUTOSIDE) [Concomitant]
  4. AESCIN (ESCIN) [Concomitant]
  5. RAMIPRIL [Concomitant]
  6. TANAKAN (GINKGO BILOBA EXTRACT) [Concomitant]

REACTIONS (2)
  - ENDOPHTHALMITIS [None]
  - EYE INFECTION STAPHYLOCOCCAL [None]
